FAERS Safety Report 20749077 (Version 1)
Quarter: 2022Q2

REPORT INFORMATION
  Report Type: Spontaneous
  Country: US (occurrence: US)
  Receive Date: 20220426
  Receipt Date: 20220426
  Transmission Date: 20220721
  Serious: Yes (Other)
  Sender: FDA-Public Use
  Company Number: US-AMGEN-USASP2022069989

PATIENT
  Age: 32 Year
  Sex: Female

DRUGS (3)
  1. CORLANOR [Suspect]
     Active Substance: IVABRADINE HYDROCHLORIDE
     Indication: Tachycardia
     Dosage: 1.5 PILL
     Route: 065
     Dates: start: 202202
  2. DILTIAZEM [Concomitant]
     Active Substance: DILTIAZEM
     Dosage: UNK
     Route: 065
  3. METOPROLOL [Concomitant]
     Active Substance: METOPROLOL
     Dosage: UNK
     Route: 065

REACTIONS (6)
  - Cerebral haemorrhage [Unknown]
  - Sepsis [Unknown]
  - Systemic lupus erythematosus [Unknown]
  - Urinary tract infection [Unknown]
  - Back injury [Unknown]
  - Off label use [Unknown]

NARRATIVE: CASE EVENT DATE: 20220101
